FAERS Safety Report 7253142-X (Version None)
Quarter: 2011Q1

REPORT INFORMATION
  Report Type: 
  Country: None (occurrence: None)
  Receive Date: 20110129
  Receipt Date: 20100127
  Transmission Date: 20110831
  Serious: No
  Sender: FDA-Public Use
  Company Number: US-ABBOTT-10P-163-0622668-00

PATIENT
  Sex: Male
  Weight: 95.34 kg

DRUGS (9)
  1. METHOTREXATE [Concomitant]
     Indication: ANKYLOSING SPONDYLITIS
  2. MOBIC [Concomitant]
     Indication: PAIN
  3. PREDNISONE [Concomitant]
     Indication: ANKYLOSING SPONDYLITIS
  4. CLONAZEPAM [Concomitant]
     Indication: RESTLESS LEGS SYNDROME
  5. HUMIRA [Suspect]
     Indication: ANKYLOSING SPONDYLITIS
     Dates: start: 20090912, end: 20091227
  6. FOLIC ACID [Concomitant]
     Indication: ANKYLOSING SPONDYLITIS
  7. HYDROCODONE [Concomitant]
     Indication: PAIN
  8. TRAMADOL HCL [Concomitant]
     Indication: ANKYLOSING SPONDYLITIS
  9. TYLENOL (CAPLET) [Concomitant]
     Indication: ANKYLOSING SPONDYLITIS

REACTIONS (9)
  - MUSCLE ATROPHY [None]
  - GAIT DISTURBANCE [None]
  - ILL-DEFINED DISORDER [None]
  - HYPOAESTHESIA [None]
  - SWELLING FACE [None]
  - DYSPNOEA EXERTIONAL [None]
  - ARTHRALGIA [None]
  - MUSCULAR WEAKNESS [None]
  - PARAESTHESIA [None]
